FAERS Safety Report 15802655 (Version 1)
Quarter: 2019Q1

REPORT INFORMATION
  Report Type: Spontaneous
  Country: US (occurrence: US)
  Receive Date: 20190108
  Receipt Date: 20190108
  Transmission Date: 20190417
  Serious: Yes (Disabling)
  Sender: FDA-Public Use
  Company Number: None

PATIENT
  Age: 50 Year
  Sex: Female
  Weight: 85.5 kg

DRUGS (7)
  1. SINGULAIR [Concomitant]
     Active Substance: MONTELUKAST SODIUM
  2. MULTIVITAMIN [Concomitant]
     Active Substance: VITAMINS
  3. ALLEGRA [Concomitant]
     Active Substance: FEXOFENADINE HYDROCHLORIDE
  4. ZANTAC [Concomitant]
     Active Substance: RANITIDINE HYDROCHLORIDE
  5. DOMPERIDONE [Suspect]
     Active Substance: DOMPERIDONE
     Indication: LACTATION STIMULATION THERAPY
     Dosage: ?          QUANTITY:3 CAPSULE(S);?
     Route: 048
  6. ADDERALL XR [Concomitant]
     Active Substance: AMPHETAMINE ASPARTATE\AMPHETAMINE SULFATE\DEXTROAMPHETAMINE SACCHARATE\DEXTROAMPHETAMINE SULFATE
  7. ALDACTONE [Concomitant]
     Active Substance: SPIRONOLACTONE

REACTIONS (2)
  - Invasive ductal breast carcinoma [None]
  - Intraductal proliferative breast lesion [None]

NARRATIVE: CASE EVENT DATE: 20181108
